FAERS Safety Report 23118445 (Version 6)
Quarter: 2024Q2

REPORT INFORMATION
  Report Type: Spontaneous
  Country: US (occurrence: US)
  Receive Date: 20231028
  Receipt Date: 20240411
  Transmission Date: 20240715
  Serious: Yes (Other)
  Sender: FDA-Public Use
  Company Number: US-PFIZER INC-PV202300175587

PATIENT
  Age: 73 Year
  Sex: Female
  Weight: 86.168 kg

DRUGS (2)
  1. ENBREL [Suspect]
     Active Substance: ETANERCEPT
     Indication: Rheumatoid arthritis
     Dosage: UNK
     Route: 065
  2. AMLODIPINE [Concomitant]
     Active Substance: AMLODIPINE BESYLATE
     Indication: Product used for unknown indication
     Dosage: 2.5 MILLIGRAM (2.5 MG)
     Route: 065

REACTIONS (5)
  - Disseminated intravascular coagulation [Unknown]
  - Cardiac disorder [Unknown]
  - Heart rate irregular [Unknown]
  - Blood pressure increased [Unknown]
  - Drug hypersensitivity [Unknown]
